APPROVED DRUG PRODUCT: AMPHOTERICIN B
Active Ingredient: AMPHOTERICIN B
Strength: 50MG/VIAL
Dosage Form/Route: INJECTABLE;INJECTION
Application: A063206 | Product #001
Applicant: XGEN PHARMACEUTICALS DJB INC
Approved: Apr 29, 1992 | RLD: No | RS: Yes | Type: RX